FAERS Safety Report 24772610 (Version 3)
Quarter: 2024Q4

REPORT INFORMATION
  Report Type: Spontaneous
  Country: US (occurrence: US)
  Receive Date: 20241225
  Receipt Date: 20241230
  Transmission Date: 20250115
  Serious: Yes (Other)
  Sender: SANDOZ
  Company Number: US-SANDOZ-SDZ2024US104343

PATIENT
  Sex: Female

DRUGS (1)
  1. ALPRAZOLAM [Suspect]
     Active Substance: ALPRAZOLAM
     Indication: Post-traumatic stress disorder
     Dosage: UNK QD
     Route: 065

REACTIONS (7)
  - Blood pressure increased [Unknown]
  - Urticaria [Not Recovered/Not Resolved]
  - Pruritus [Unknown]
  - Fatigue [Unknown]
  - Product taste abnormal [Unknown]
  - Poor quality product administered [Unknown]
  - Drug ineffective [Unknown]
